FAERS Safety Report 16997459 (Version 1)
Quarter: 2019Q4

REPORT INFORMATION
  Report Type: Spontaneous
  Country: CA (occurrence: CA)
  Receive Date: 20191106
  Receipt Date: 20191106
  Transmission Date: 20200122
  Serious: Yes (Death, Other)
  Sender: FDA-Public Use
  Company Number: CA-SA-2019SA303106

PATIENT
  Age: 76 Year
  Sex: Male

DRUGS (8)
  1. TIGECYCLINE. [Suspect]
     Active Substance: TIGECYCLINE
     Indication: MYCOBACTERIAL INFECTION
     Dosage: VIALS
  2. RIFAMPICIN [Suspect]
     Active Substance: RIFAMPIN
     Indication: MYCOBACTERIAL INFECTION
  3. IMIPENEM AND CILASTATIN [Suspect]
     Active Substance: CILASTATIN SODIUM\IMIPENEM
     Indication: EVIDENCE BASED TREATMENT
  4. RIFAMPICIN [Suspect]
     Active Substance: RIFAMPIN
     Indication: EVIDENCE BASED TREATMENT
  5. IMIPENEM AND CILASTATIN [Suspect]
     Active Substance: CILASTATIN SODIUM\IMIPENEM
     Indication: MYCOBACTERIAL INFECTION
     Route: 042
  6. AZITHROMYCIN MONOHYDRATE. [Suspect]
     Active Substance: AZITHROMYCIN MONOHYDRATE
     Indication: EVIDENCE BASED TREATMENT
  7. AZITHROMYCIN MONOHYDRATE. [Suspect]
     Active Substance: AZITHROMYCIN MONOHYDRATE
     Indication: MYCOBACTERIAL INFECTION
  8. TIGECYCLINE. [Suspect]
     Active Substance: TIGECYCLINE
     Indication: EVIDENCE BASED TREATMENT

REACTIONS (1)
  - Drug ineffective [Fatal]
